FAERS Safety Report 12428528 (Version 1)
Quarter: 2016Q2

REPORT INFORMATION
  Report Type: Spontaneous
  Country: US (occurrence: US)
  Receive Date: 20160602
  Receipt Date: 20160602
  Transmission Date: 20160815
  Serious: No
  Sender: FDA-Public Use
  Company Number: US-BAUSCH-BL-2015-030531

PATIENT
  Age: 71 Year
  Sex: Female
  Weight: 61.29 kg

DRUGS (6)
  1. ELIDEL [Suspect]
     Active Substance: PIMECROLIMUS
     Indication: PRURITUS
     Dosage: 1 APPLICATION TO HER NECK AS NEEDED
     Route: 061
  2. MUTIVITAMIN [Concomitant]
     Indication: SUPPLEMENTATION THERAPY
     Route: 048
  3. PROBIOTIC [Concomitant]
     Active Substance: PROBIOTICS NOS
     Indication: SUPPLEMENTATION THERAPY
     Route: 048
  4. FISH OIL [Suspect]
     Active Substance: FISH OIL
     Indication: SUPPLEMENTATION THERAPY
     Route: 048
  5. CALCIUM [Concomitant]
     Active Substance: CALCIUM
     Indication: SUPPLEMENTATION THERAPY
     Route: 048
  6. NOVACAINE [Suspect]
     Active Substance: PROCAINE
     Indication: TOOTH DISORDER
     Dates: start: 20151218, end: 20151218

REACTIONS (7)
  - Eye swelling [Unknown]
  - Muscle tightness [Recovering/Resolving]
  - Skin tightness [Not Recovered/Not Resolved]
  - Application site swelling [Not Recovered/Not Resolved]
  - Local swelling [Recovering/Resolving]
  - Erythema [Recovered/Resolved]
  - Swelling face [Unknown]

NARRATIVE: CASE EVENT DATE: 2015
